FAERS Safety Report 12010080 (Version 1)
Quarter: 2016Q1

REPORT INFORMATION
  Report Type: Spontaneous
  Country: CA (occurrence: CA)
  Receive Date: 20160205
  Receipt Date: 20160205
  Transmission Date: 20160526
  Serious: Yes (Death)
  Sender: FDA-Public Use
  Company Number: CA-TEVA-631504ACC

PATIENT
  Age: 42 Year
  Sex: Male
  Weight: 180 kg

DRUGS (5)
  1. TEMAZEPAM. [Concomitant]
     Active Substance: TEMAZEPAM
  2. ASA [Concomitant]
     Active Substance: ASPIRIN
  3. TYLENOL 3 (ACETAMINOPHEN/CODEINE) [Concomitant]
  4. HYDROCHLOROTHIAZIDE. [Concomitant]
     Active Substance: HYDROCHLOROTHIAZIDE
  5. METFORMIN [Suspect]
     Active Substance: METFORMIN HYDROCHLORIDE

REACTIONS (4)
  - Drug level above therapeutic [Fatal]
  - Unresponsive to stimuli [Fatal]
  - Blood ethanol increased [Fatal]
  - Suicidal ideation [Fatal]
